FAERS Safety Report 18585937 (Version 2)
Quarter: 2020Q4

REPORT INFORMATION
  Report Type: Spontaneous
  Country: US (occurrence: US)
  Receive Date: 20201207
  Receipt Date: 20201215
  Transmission Date: 20210114
  Serious: No
  Sender: FDA-Public Use
  Company Number: US-BAYER-2020-261704

PATIENT
  Age: 4 Decade
  Sex: Female
  Weight: 97.52 kg

DRUGS (2)
  1. CELEBREX [Concomitant]
     Active Substance: CELECOXIB
     Indication: ARTHRITIS
  2. ALEVE [Suspect]
     Active Substance: NAPROXEN SODIUM
     Indication: INTERVERTEBRAL DISC DEGENERATION
     Dosage: 2 DF, BID
     Dates: end: 2009

REACTIONS (3)
  - Extra dose administered [None]
  - Drug hypersensitivity [None]
  - Abdominal pain upper [Recovered/Resolved]
